FAERS Safety Report 17349902 (Version 1)
Quarter: 2020Q1

REPORT INFORMATION
  Report Type: Report from Study
  Country: None (occurrence: US)
  Receive Date: 20200130
  Receipt Date: 20200130
  Transmission Date: 20200409
  Serious: Yes (Other)
  Sender: FDA-Public Use
  Company Number: US-ABBVIE-18K-163-2424144-00

PATIENT
  Age: 59 Year
  Sex: Female

DRUGS (1)
  1. HUMIRA [Suspect]
     Active Substance: ADALIMUMAB
     Indication: HIDRADENITIS
     Route: 058

REACTIONS (20)
  - Loss of consciousness [Unknown]
  - Stent placement [Unknown]
  - Post procedural complication [Unknown]
  - Weight decreased [Unknown]
  - Cyst [Unknown]
  - Ear infection [Unknown]
  - Impaired healing [Unknown]
  - Myocardial infarction [Unknown]
  - Fibromyalgia [Unknown]
  - Hidradenitis [Recovered/Resolved]
  - Vomiting [Unknown]
  - Diabetes mellitus [Unknown]
  - Injection site pain [Unknown]
  - Hypertension [Unknown]
  - Dehydration [Unknown]
  - Hidradenitis [Not Recovered/Not Resolved]
  - Thrombosis [Unknown]
  - Hyperhidrosis [Unknown]
  - Cardiac disorder [Unknown]
  - Haematochezia [Unknown]

NARRATIVE: CASE EVENT DATE: 201801
